FAERS Safety Report 10234685 (Version 1)
Quarter: 2014Q2

REPORT INFORMATION
  Report Type: Spontaneous
  Country: TR (occurrence: TR)
  Receive Date: 20140613
  Receipt Date: 20140613
  Transmission Date: 20141212
  Serious: Yes (Hospitalization)
  Sender: FDA-Public Use
  Company Number: TR-ROCHE-1418111

PATIENT
  Age: 56 Year
  Sex: Male
  Weight: 69.5 kg

DRUGS (2)
  1. MIRCERA [Suspect]
     Indication: ANAEMIA
     Dosage: 120 MCG/ML
     Route: 058
     Dates: start: 20140611, end: 20140611
  2. VENOFER [Concomitant]
     Route: 042
     Dates: start: 20140611, end: 20140611

REACTIONS (5)
  - Secretion discharge [Recovered/Resolved]
  - Rash generalised [Recovering/Resolving]
  - Pruritus [Recovering/Resolving]
  - Blister [Recovering/Resolving]
  - Hyperhidrosis [Recovering/Resolving]
